FAERS Safety Report 9059103 (Version 1)
Quarter: 2013Q1

REPORT INFORMATION
  Report Type: Spontaneous
  Country: US (occurrence: US)
  Receive Date: 20130211
  Receipt Date: 20130211
  Transmission Date: 20140127
  Serious: No
  Sender: FDA-Public Use
  Company Number: US-BRISTOL-MYERS SQUIBB COMPANY-16865362

PATIENT
  Age: 76 Year
  Sex: Female
  Weight: 63.04 kg

DRUGS (5)
  1. METFORMIN HCL [Suspect]
     Indication: DIABETES MELLITUS
     Dosage: STATR DATE: BETWEEN JAN11-MAR2012
     Route: 048
  2. AVAPRO [Suspect]
     Route: 048
  3. SIMVASTATIN [Suspect]
     Route: 048
  4. LOSARTAN [Suspect]
     Route: 048
  5. GLIPIZIDE [Suspect]
     Route: 048

REACTIONS (1)
  - Weight decreased [Unknown]
